FAERS Safety Report 13256821 (Version 1)
Quarter: 2017Q1

REPORT INFORMATION
  Report Type: Spontaneous
  Country: US (occurrence: US)
  Receive Date: 20170221
  Receipt Date: 20170221
  Transmission Date: 20170428
  Serious: No
  Sender: FDA-Public Use
  Company Number: US-NEOS THERAPEUTICS, LP-2016NEO00057

PATIENT
  Age: 9 Year
  Sex: Male
  Weight: 24.49 kg

DRUGS (3)
  1. ADZENYS XR-ODT [Suspect]
     Active Substance: AMPHETAMINE
     Indication: LEARNING DISABILITY
     Dosage: 6.3 MG, 1X/DAY
     Route: 048
     Dates: start: 201611
  2. CLARITIN [Concomitant]
     Active Substance: LORATADINE
     Dosage: UNK, 1X/DAY
  3. ADZENYS XR-ODT [Suspect]
     Active Substance: AMPHETAMINE
     Indication: PSYCHOMOTOR HYPERACTIVITY
     Dosage: 3.1 MG, 1X/DAY
     Route: 048
     Dates: start: 201610, end: 201611

REACTIONS (2)
  - Drug ineffective [Not Recovered/Not Resolved]
  - Abnormal behaviour [Recovered/Resolved]

NARRATIVE: CASE EVENT DATE: 201611
